FAERS Safety Report 9837932 (Version 1)
Quarter: 2013Q4

REPORT INFORMATION
  Report Type: Spontaneous
  Country: US (occurrence: None)
  Receive Date: 20131205
  Receipt Date: 20131205
  Transmission Date: 20140711
  Serious: Yes (Hospitalization)
  Sender: FDA-Public Use
  Company Number: 163-POMAL-13094324

PATIENT
  Age: 66 Year
  Sex: Female
  Weight: 82.6 kg

DRUGS (18)
  1. POMALYST [Suspect]
     Indication: MANTLE CELL LYMPHOMA
     Dosage: 21 IN 28 D
     Route: 048
     Dates: start: 20130827, end: 201309
  2. ACYCLOVIR (ACICLOVIR) (ACICLOVIR) [Concomitant]
  3. ALLOPURINOL (ALLOPURINOL) [Concomitant]
  4. VITAMIN D (ERGOCALCIFEROL) [Concomitant]
  5. DAPSONE [Concomitant]
  6. LEVOTHYROXINE [Concomitant]
  7. COMPLEX (BECOSYM FORTE) [Concomitant]
  8. PRAVASTATIN [Concomitant]
  9. FISH OIL [Concomitant]
  10. COENZYME Q10 (UBIDECARENONE) [Concomitant]
  11. DEXAMETHASONE [Concomitant]
  12. BENDAMUSTINE [Concomitant]
  13. CARFILZOMIB (CARFILZOMIB) [Concomitant]
  14. PREDNISONE [Concomitant]
  15. PROTON PUMP INHIBITOR (DRUGS FOR ACID RELATED DISORDERS) [Concomitant]
  16. REPLACEMENT THERAPY (ALL OTHER TERAPEUTIC PRODUCTS) [Concomitant]
  17. ASA (ACETYLSALICYLIC ACID) [Concomitant]
  18. RITUXIMAB (RITUXIMAB) [Concomitant]

REACTIONS (1)
  - Pulmonary embolism [None]
